FAERS Safety Report 5752747-2 (Version None)
Quarter: 2008Q2

REPORT INFORMATION
  Report Type: 
  Country: None (occurrence: None)
  Receive Date: 20080527
  Receipt Date: 20080527
  Transmission Date: 20081010
  Serious: Yes (Life-Threatening, Hospitalization, Disabling)
  Sender: FDA-Public Use
  Company Number: None

PATIENT
  Age: 39 Year
  Sex: Female
  Weight: 166.4701 kg

DRUGS (3)
  1. METOPROLOL SUCCINATE EXTENDED RELEASE [Suspect]
     Indication: CARDIAC FAILURE CONGESTIVE
     Dosage: 25 MG 1 DAILY PO
     Route: 048
     Dates: start: 20080301, end: 20080526
  2. METOPROLOL SUCCINATE EXTENDED RELEASE [Suspect]
     Indication: HYPERTENSION
     Dosage: 25 MG 1 DAILY PO
     Route: 048
     Dates: start: 20080301, end: 20080526
  3. METOPROLOL SUCCINATE EXTENDED RELEASE [Suspect]
     Indication: VENTRICULAR EXTRASYSTOLES
     Dosage: 25 MG 1 DAILY PO
     Route: 048
     Dates: start: 20080301, end: 20080526

REACTIONS (7)
  - ASTHENIA [None]
  - DIZZINESS [None]
  - HEART RATE DECREASED [None]
  - LOSS OF CONSCIOUSNESS [None]
  - MENTAL IMPAIRMENT [None]
  - PANIC ATTACK [None]
  - PHARMACEUTICAL PRODUCT COMPLAINT [None]
